FAERS Safety Report 8536939-5 (Version None)
Quarter: 2012Q3

REPORT INFORMATION
  Report Type: 
  Country: None (occurrence: None)
  Receive Date: 20120725
  Receipt Date: 20120717
  Transmission Date: 20120928
  Serious: Yes (Other)
  Sender: FDA-Public Use
  Company Number: CA-JNJFOC-20120709429

PATIENT
  Sex: Male
  Weight: 83.2 kg

DRUGS (1)
  1. REMICADE [Suspect]
     Indication: CROHN'S DISEASE
     Dosage: ONCE IN 7-8 WEEKS
     Route: 042
     Dates: start: 20030918

REACTIONS (2)
  - HERNIA [None]
  - LOCALISED OEDEMA [None]
